FAERS Safety Report 20678594 (Version 1)
Quarter: 2022Q2

REPORT INFORMATION
  Report Type: Spontaneous
  Country: US (occurrence: US)
  Receive Date: 20220406
  Receipt Date: 20220406
  Transmission Date: 20220720
  Serious: Yes (Other)
  Sender: FDA-Public Use
  Company Number: US-GLAXOSMITHKLINE-US2022GSK060183

PATIENT
  Sex: Female

DRUGS (7)
  1. ZANTAC [Suspect]
     Active Substance: RANITIDINE HYDROCHLORIDE
     Dosage: UNK UNK, U
     Route: 065
     Dates: start: 200702, end: 201009
  2. ZANTAC [Suspect]
     Active Substance: RANITIDINE HYDROCHLORIDE
     Dosage: UNK UNK, U
     Route: 065
     Dates: start: 200702, end: 201009
  3. ZANTAC [Suspect]
     Active Substance: RANITIDINE HYDROCHLORIDE
     Dosage: UNK UNK, U
     Route: 065
     Dates: start: 200702, end: 201009
  4. RANITIDINE [Suspect]
     Active Substance: RANITIDINE
     Dosage: UNK UNK, U
     Route: 065
     Dates: start: 200702, end: 201009
  5. RANITIDINE [Suspect]
     Active Substance: RANITIDINE
     Dosage: UNK, U
     Route: 065
     Dates: start: 200702, end: 201009
  6. RANITIDINE [Suspect]
     Active Substance: RANITIDINE
     Dosage: UNK, U
     Route: 065
     Dates: start: 200702, end: 201009
  7. RANITIDINE [Suspect]
     Active Substance: RANITIDINE
     Dosage: UNK, U
     Route: 065
     Dates: start: 200702, end: 201009

REACTIONS (1)
  - Colorectal cancer [Unknown]
